FAERS Safety Report 16260966 (Version 5)
Quarter: 2020Q1

REPORT INFORMATION
  Report Type: Spontaneous
  Country: US (occurrence: US)
  Receive Date: 20190501
  Receipt Date: 20200218
  Transmission Date: 20200409
  Serious: Yes (Hospitalization, Other)
  Sender: FDA-Public Use
  Company Number: US-ASTRAZENECA-2019SE10755

PATIENT
  Age: 21587 Day
  Sex: Male
  Weight: 120.7 kg

DRUGS (64)
  1. OMEPRAZOLE. [Suspect]
     Active Substance: OMEPRAZOLE
     Indication: GASTROOESOPHAGEAL REFLUX DISEASE
     Route: 048
     Dates: start: 20130528
  2. OMEPRAZOLE. [Suspect]
     Active Substance: OMEPRAZOLE
     Indication: GASTROOESOPHAGEAL REFLUX DISEASE
     Route: 048
     Dates: start: 20130528
  3. OMEPRAZOLE. [Suspect]
     Active Substance: OMEPRAZOLE
     Indication: GASTROOESOPHAGEAL REFLUX DISEASE
     Dosage: 20.0MG UNKNOWN
     Route: 048
     Dates: start: 20181213
  4. METOPROLOL. [Concomitant]
     Active Substance: METOPROLOL
     Indication: RENAL DISORDER
     Dates: start: 2005
  5. MINOXIDIL. [Concomitant]
     Active Substance: MINOXIDIL
     Indication: RENAL DISORDER
     Route: 048
     Dates: start: 20100129
  6. DILTIAZEM. [Concomitant]
     Active Substance: DILTIAZEM
     Indication: RENAL DISORDER
     Dates: start: 2008, end: 2019
  7. ALLOPURINOL. [Concomitant]
     Active Substance: ALLOPURINOL
     Indication: GOUT
     Route: 048
     Dates: start: 20141113
  8. SIMVASTATIN. [Concomitant]
     Active Substance: SIMVASTATIN
     Indication: HYPERLIPIDAEMIA
     Dates: start: 2005
  9. AMOXICILLIN. [Concomitant]
     Active Substance: AMOXICILLIN
     Dosage: FOR 10 DAYS
     Route: 048
     Dates: start: 20150130
  10. TRIAMCINOLON [Concomitant]
     Dosage: APPLY CREAM TO AFFECTED AREA TWICE DAILY FOR 5-7 DAYS, USE SPARINGLY
     Route: 061
     Dates: start: 20160601
  11. PREDNISONE. [Concomitant]
     Active Substance: PREDNISONE
     Route: 048
  12. OMEPRAZOLE. [Suspect]
     Active Substance: OMEPRAZOLE
     Indication: GASTROOESOPHAGEAL REFLUX DISEASE
     Route: 065
     Dates: start: 2012
  13. PREVACID [Suspect]
     Active Substance: LANSOPRAZOLE
     Indication: DYSPEPSIA
     Route: 065
     Dates: start: 2006, end: 2012
  14. DILTIAZEM. [Concomitant]
     Active Substance: DILTIAZEM
     Indication: HYPERTENSION
     Dates: start: 2008, end: 2019
  15. DILTIAZEM. [Concomitant]
     Active Substance: DILTIAZEM
     Indication: ESSENTIAL HYPERTENSION
     Dates: start: 2008, end: 2019
  16. PEPCID AC [Concomitant]
     Active Substance: FAMOTIDINE
     Dates: start: 2013
  17. FUROSEMIDE. [Concomitant]
     Active Substance: FUROSEMIDE
     Route: 048
     Dates: start: 20120111
  18. CYCLOBENZAPRINE. [Concomitant]
     Active Substance: CYCLOBENZAPRINE
     Route: 048
     Dates: start: 20171021
  19. ASPIRIN. [Concomitant]
     Active Substance: ASPIRIN
     Indication: CORONARY ARTERY DISEASE
     Route: 048
  20. PRILOSEC OTC [Suspect]
     Active Substance: OMEPRAZOLE MAGNESIUM
     Indication: DYSPEPSIA
     Dosage: 15.0MG UNKNOWN
     Route: 048
     Dates: start: 20070101, end: 20180730
  21. NEXIUM 24HR [Suspect]
     Active Substance: ESOMEPRAZOLE MAGNESIUM
     Indication: DYSPEPSIA
     Dosage: 20.0MG UNKNOWN
     Route: 048
     Dates: start: 2012, end: 2013
  22. OMEPRAZOLE. [Suspect]
     Active Substance: OMEPRAZOLE
     Indication: DYSPEPSIA
     Route: 048
     Dates: start: 20130528
  23. OMEPRAZOLE. [Suspect]
     Active Substance: OMEPRAZOLE
     Indication: DYSPEPSIA
     Dosage: 20.0MG UNKNOWN
     Route: 065
     Dates: start: 2014
  24. BENICAR [Concomitant]
     Active Substance: OLMESARTAN MEDOXOMIL
     Indication: BLOOD PRESSURE ABNORMAL
     Dates: start: 2005, end: 2008
  25. METOPROLOL. [Concomitant]
     Active Substance: METOPROLOL
     Indication: RENAL DISORDER
     Route: 048
     Dates: start: 20100124
  26. MINOXIDIL. [Concomitant]
     Active Substance: MINOXIDIL
     Indication: RENAL DISORDER
     Dates: start: 2005
  27. SIMVASTATIN. [Concomitant]
     Active Substance: SIMVASTATIN
     Indication: HYPERLIPIDAEMIA
     Route: 048
     Dates: start: 20141113
  28. TAMIFLU [Concomitant]
     Active Substance: OSELTAMIVIR PHOSPHATE
     Dosage: FOR 5 DAYS
     Route: 048
     Dates: start: 20150130
  29. PRILOSEC OTC [Suspect]
     Active Substance: OMEPRAZOLE MAGNESIUM
     Indication: DYSPEPSIA
     Dosage: 20.0MG UNKNOWN
     Route: 048
     Dates: start: 199901, end: 201201
  30. NEXIUM 24HR [Suspect]
     Active Substance: ESOMEPRAZOLE MAGNESIUM
     Indication: GASTROOESOPHAGEAL REFLUX DISEASE
     Dosage: 20.0MG UNKNOWN
     Route: 048
     Dates: start: 2012, end: 2013
  31. OMEPRAZOLE. [Suspect]
     Active Substance: OMEPRAZOLE
     Indication: GASTROOESOPHAGEAL REFLUX DISEASE
     Route: 065
     Dates: start: 2012
  32. OMEPRAZOLE. [Suspect]
     Active Substance: OMEPRAZOLE
     Indication: GASTROOESOPHAGEAL REFLUX DISEASE
     Dosage: 20.0MG UNKNOWN
     Route: 065
     Dates: start: 2014
  33. PREVACID 24 HR [Suspect]
     Active Substance: LANSOPRAZOLE
     Indication: GASTROOESOPHAGEAL REFLUX DISEASE
     Dosage: 15.0MG UNKNOWN
     Route: 065
     Dates: start: 20070101, end: 20180730
  34. ALLOPURINOL. [Concomitant]
     Active Substance: ALLOPURINOL
     Indication: GOUT
     Dates: start: 2014
  35. SIMVASTATIN. [Concomitant]
     Active Substance: SIMVASTATIN
     Indication: BLOOD PRESSURE ABNORMAL
     Route: 048
     Dates: start: 20141113
  36. NORCO [Concomitant]
     Active Substance: ACETAMINOPHEN\HYDROCODONE BITARTRATE
     Indication: PAIN
     Route: 048
     Dates: start: 20111122
  37. HYDROCHLOROTHIAZIDE. [Concomitant]
     Active Substance: HYDROCHLOROTHIAZIDE
     Route: 048
     Dates: start: 20100612
  38. COLCRYS [Concomitant]
     Active Substance: COLCHICINE
     Route: 048
     Dates: start: 20110923
  39. VIGAMOX [Concomitant]
     Active Substance: MOXIFLOXACIN HYDROCHLORIDE
     Dosage: RIGHT EYE
     Route: 047
     Dates: start: 20130409
  40. NEXIUM [Suspect]
     Active Substance: ESOMEPRAZOLE MAGNESIUM
     Indication: GASTROOESOPHAGEAL REFLUX DISEASE
     Route: 048
     Dates: start: 2012, end: 2013
  41. OMEPRAZOLE. [Suspect]
     Active Substance: OMEPRAZOLE
     Indication: DYSPEPSIA
     Dosage: 20.0MG UNKNOWN
     Route: 048
     Dates: start: 20181213
  42. METOPROLOL. [Concomitant]
     Active Substance: METOPROLOL
     Indication: BLOOD PRESSURE ABNORMAL
     Dates: start: 2005
  43. METOPROLOL. [Concomitant]
     Active Substance: METOPROLOL
     Indication: BLOOD PRESSURE ABNORMAL
     Route: 048
     Dates: start: 20100124
  44. LISINOPRIL. [Concomitant]
     Active Substance: LISINOPRIL
     Indication: RENAL DISORDER
     Dates: start: 2005
  45. SIMVASTATIN. [Concomitant]
     Active Substance: SIMVASTATIN
     Indication: BLOOD PRESSURE ABNORMAL
     Dates: start: 2005
  46. FLUTICASONE. [Concomitant]
     Active Substance: FLUTICASONE
     Dosage: USE TWO SPRAY(S) IN EACH NOSTRIL ONCE DAILY
     Route: 055
     Dates: start: 20150130
  47. AMOX/K CLAV [Concomitant]
     Active Substance: AMOXICILLIN\CLAVULANATE POTASSIUM
     Dosage: TAKE ONE TABLET BY MOUTH TWICE DAILY
     Route: 048
     Dates: start: 20171016
  48. VITAMIN D [Concomitant]
     Active Substance: VITAMIN D NOS
     Route: 048
  49. LEVAQUIN [Concomitant]
     Active Substance: LEVOFLOXACIN
     Route: 048
  50. LISINOPRIL. [Concomitant]
     Active Substance: LISINOPRIL
     Indication: RENAL DISORDER
     Route: 048
     Dates: start: 20141113
  51. NORCO [Concomitant]
     Active Substance: ACETAMINOPHEN\HYDROCODONE BITARTRATE
     Indication: PAIN
     Dates: start: 2009
  52. MOVIPREP [Concomitant]
     Active Substance: ASCORBIC ACID\POLYETHYLENE GLYCOL 3350\POTASSIUM CHLORIDE\SODIUM ASCORBATE\SODIUM CHLORIDE\SODIUM SULFATE
     Dosage: TAKE ACCORDING TO PACKAGE INSTRUCTIONS OR AS DIRECTED BY DOCTOR
     Dates: start: 20100505
  53. OMEPRAZOLE. [Suspect]
     Active Substance: OMEPRAZOLE
     Indication: DYSPEPSIA
     Route: 065
     Dates: start: 2012
  54. OMEPRAZOLE. [Suspect]
     Active Substance: OMEPRAZOLE
     Indication: GASTROOESOPHAGEAL REFLUX DISEASE
     Dosage: 20.0MG UNKNOWN
     Route: 065
     Dates: start: 2014
  55. OMEPRAZOLE. [Suspect]
     Active Substance: OMEPRAZOLE
     Indication: GASTROOESOPHAGEAL REFLUX DISEASE
     Dosage: 20.0MG UNKNOWN
     Route: 048
     Dates: start: 20181213
  56. PREVACID [Suspect]
     Active Substance: LANSOPRAZOLE
     Indication: GASTROOESOPHAGEAL REFLUX DISEASE
     Route: 065
     Dates: start: 2006, end: 2012
  57. PREVACID 24 HR [Suspect]
     Active Substance: LANSOPRAZOLE
     Indication: DYSPEPSIA
     Dosage: 15.0MG UNKNOWN
     Route: 065
     Dates: start: 20070101, end: 20180730
  58. LISINOPRIL. [Concomitant]
     Active Substance: LISINOPRIL
     Indication: ESSENTIAL HYPERTENSION
     Route: 048
     Dates: start: 20141113
  59. PRILOSEC OTC [Suspect]
     Active Substance: OMEPRAZOLE MAGNESIUM
     Indication: GASTROOESOPHAGEAL REFLUX DISEASE
     Dosage: 20.0MG UNKNOWN
     Route: 048
     Dates: start: 199901, end: 201201
  60. PRILOSEC OTC [Suspect]
     Active Substance: OMEPRAZOLE MAGNESIUM
     Indication: GASTROOESOPHAGEAL REFLUX DISEASE
     Dosage: 15.0MG UNKNOWN
     Route: 048
     Dates: start: 20070101, end: 20180730
  61. BENICAR [Concomitant]
     Active Substance: OLMESARTAN MEDOXOMIL
     Indication: RENAL DISORDER
     Dates: start: 2005, end: 2008
  62. LISINOPRIL. [Concomitant]
     Active Substance: LISINOPRIL
     Indication: ESSENTIAL HYPERTENSION
     Dates: start: 2005
  63. PREDNISOLONE ACETATE. [Concomitant]
     Active Substance: PREDNISOLONE ACETATE
     Dosage: RIGHT EYE
     Route: 047
     Dates: start: 20130409
  64. TAZTIA XT [Concomitant]
     Active Substance: DILTIAZEM HYDROCHLORIDE
     Dosage: 240 MG/24 HR TAKE ONE CAPSULE BY MOUTH ONCE DAILY
     Route: 048
     Dates: start: 20141113

REACTIONS (6)
  - Chronic kidney disease [Not Recovered/Not Resolved]
  - Renal injury [Unknown]
  - Renal impairment [Not Recovered/Not Resolved]
  - Nephrogenic anaemia [Unknown]
  - Rebound acid hypersecretion [Unknown]
  - Renal failure [Unknown]

NARRATIVE: CASE EVENT DATE: 20110701
